FAERS Safety Report 5531800-2 (Version None)
Quarter: 2007Q4

REPORT INFORMATION
  Report Type: 
  Country: None (occurrence: None)
  Receive Date: 20071128
  Receipt Date: 20071128
  Transmission Date: 20080405
  Serious: No
  Sender: FDA-Public Use
  Company Number: None

PATIENT

DRUGS (1)
  1. ASTELIN [Suspect]
     Route: 045

REACTIONS (1)
  - HYPOAESTHESIA FACIAL [None]
